FAERS Safety Report 23110323 (Version 1)
Quarter: 2023Q4

REPORT INFORMATION
  Report Type: Spontaneous
  Country: FR (occurrence: FR)
  Receive Date: 20231026
  Receipt Date: 20231026
  Transmission Date: 20240109
  Serious: Yes (Other)
  Sender: FDA-Public Use
  Company Number: None

PATIENT
  Age: 66 Year
  Sex: Male

DRUGS (4)
  1. RAMIPRIL [Suspect]
     Active Substance: RAMIPRIL
     Indication: Hypertension
     Dosage: 2.5 MILLIGRAM, QD
     Route: 048
     Dates: start: 2022
  2. EDEX [Suspect]
     Active Substance: ALPROSTADIL
     Indication: Erectile dysfunction
     Dosage: 5 MICROGRAM, QD
     Route: 048
     Dates: start: 2022
  3. VESICARE [Suspect]
     Active Substance: SOLIFENACIN SUCCINATE
     Indication: Urinary incontinence
     Dosage: 5 MILLIGRAM, QD
     Route: 048
     Dates: start: 2022
  4. CIALIS [Suspect]
     Active Substance: TADALAFIL
     Indication: Erectile dysfunction
     Dosage: 10 MILLIGRAM, QD
     Route: 048
     Dates: start: 2021

REACTIONS (1)
  - Mucocutaneous ulceration [Not Recovered/Not Resolved]

NARRATIVE: CASE EVENT DATE: 20230302
